FAERS Safety Report 16632897 (Version 1)
Quarter: 2019Q3

REPORT INFORMATION
  Report Type: Spontaneous
  Country: US (occurrence: US)
  Receive Date: 20190725
  Receipt Date: 20190725
  Transmission Date: 20191004
  Serious: No
  Sender: FDA-Public Use
  Company Number: US-PFIZER INC-2019314161

PATIENT
  Age: 40 Year
  Sex: Male
  Weight: 58.6 kg

DRUGS (1)
  1. GABAPENTIN. [Suspect]
     Active Substance: GABAPENTIN
     Dosage: UNK, (BUMPED UP TO SIX PILLS THREE OR FOUR TIMES A DAY)

REACTIONS (2)
  - Drug ineffective [Unknown]
  - Off label use [Unknown]
